FAERS Safety Report 18190430 (Version 6)
Quarter: 2024Q2

REPORT INFORMATION
  Report Type: Spontaneous
  Country: CA (occurrence: None)
  Receive Date: 20200825
  Receipt Date: 20240620
  Transmission Date: 20240715
  Serious: Yes (Other)
  Sender: FDA-Public Use
  Company Number: 2020SF04996

PATIENT
  Age: 35 Year
  Sex: Male

DRUGS (19)
  1. QUETIAPINE [Interacting]
     Active Substance: QUETIAPINE
     Indication: Poor quality sleep
     Route: 048
  2. CHLORDIAZEPOXIDE [Suspect]
     Active Substance: CHLORDIAZEPOXIDE
  3. LEVOMEPROMAZINE [Interacting]
     Active Substance: LEVOMEPROMAZINE
     Indication: Poor quality sleep
  4. ZOPICLONE [Interacting]
     Active Substance: ZOPICLONE
     Indication: Poor quality sleep
  5. ZOPICLONE [Interacting]
     Active Substance: ZOPICLONE
     Indication: Poor quality sleep
  6. LEVOMEPROMAZINE [Interacting]
     Active Substance: LEVOMEPROMAZINE
     Indication: Poor quality sleep
  7. LEVOMEPROMAZINE [Interacting]
     Active Substance: LEVOMEPROMAZINE
     Indication: Poor quality sleep
  8. CLONAZEPAM [Interacting]
     Active Substance: CLONAZEPAM
     Indication: Poor quality sleep
     Route: 065
  9. CLONAZEPAM [Interacting]
     Active Substance: CLONAZEPAM
     Indication: Dystonia
     Route: 065
  10. CLONAZEPAM [Interacting]
     Active Substance: CLONAZEPAM
     Indication: Dystonia
     Route: 065
  11. CLONAZEPAM [Interacting]
     Active Substance: CLONAZEPAM
     Indication: Poor quality sleep
     Route: 065
  12. OXAZEPAM [Interacting]
     Active Substance: OXAZEPAM
     Indication: Poor quality sleep
     Route: 065
  13. OXAZEPAM [Interacting]
     Active Substance: OXAZEPAM
     Indication: Poor quality sleep
     Route: 065
  14. TEMAZEPAM [Interacting]
     Active Substance: TEMAZEPAM
     Indication: Poor quality sleep
     Route: 065
  15. TEMAZEPAM [Interacting]
     Active Substance: TEMAZEPAM
     Indication: Poor quality sleep
     Route: 065
  16. TEMAZEPAM [Interacting]
     Active Substance: TEMAZEPAM
     Indication: Poor quality sleep
  17. TEMAZEPAM [Interacting]
     Active Substance: TEMAZEPAM
     Indication: Poor quality sleep
  18. LORAZEPAM [Concomitant]
     Active Substance: LORAZEPAM
  19. SERTRALINE [Concomitant]
     Active Substance: SERTRALINE HYDROCHLORIDE

REACTIONS (7)
  - Drug interaction [Unknown]
  - Dystonia [Unknown]
  - Dystonic tremor [Unknown]
  - Restlessness [Unknown]
  - Drug ineffective [Unknown]
  - Therapeutic product effect incomplete [Unknown]
  - Off label use [Unknown]
